FAERS Safety Report 23252924 (Version 1)
Quarter: 2023Q4

REPORT INFORMATION
  Report Type: Spontaneous
  Country: BR (occurrence: BR)
  Receive Date: 20231201
  Receipt Date: 20231201
  Transmission Date: 20240109
  Serious: Yes (Death, Hospitalization)
  Sender: FDA-Public Use
  Company Number: BR-MLMSERVICE-20231117-4660307-1

PATIENT
  Sex: Female
  Weight: 0.8 kg

DRUGS (4)
  1. GENTAMICIN [Suspect]
     Active Substance: GENTAMICIN
     Indication: Neonatal infection
     Route: 065
  2. MEROPENEM [Suspect]
     Active Substance: MEROPENEM
     Indication: Bacterial infection
     Route: 065
  3. CHLORAMPHENICOL [Suspect]
     Active Substance: CHLORAMPHENICOL
     Indication: Bacterial infection
     Route: 065
  4. AMPICILLIN [Suspect]
     Active Substance: AMPICILLIN
     Indication: Neonatal infection
     Route: 065

REACTIONS (4)
  - Renal failure [Fatal]
  - Sepsis [Fatal]
  - Cardiogenic shock [Fatal]
  - Fungaemia [Fatal]
